FAERS Safety Report 9845567 (Version 3)
Quarter: 2014Q2

REPORT INFORMATION
  Report Type: Spontaneous
  Country: US (occurrence: US)
  Receive Date: 20140127
  Receipt Date: 20140602
  Transmission Date: 20141212
  Serious: Yes (Disabling, Other)
  Sender: FDA-Public Use
  Company Number: US-009507513-1401USA007596

PATIENT
  Sex: Female
  Weight: 64.85 kg

DRUGS (3)
  1. FOSAMAX [Suspect]
     Indication: OSTEOPOROSIS
     Dosage: 70 MG, QW
     Route: 048
     Dates: start: 20030215, end: 20080319
  2. ALENDRONATE SODIUM [Suspect]
     Indication: OSTEOPOROSIS
     Dosage: 70 MG, WEEKLY
     Route: 048
     Dates: start: 20080319, end: 201003
  3. ZYRTEC [Concomitant]
     Indication: HYPERSENSITIVITY
     Dosage: UNK
     Dates: start: 2006

REACTIONS (32)
  - Bone debridement [Unknown]
  - Osteonecrosis of jaw [Recovered/Resolved]
  - Tooth infection [Unknown]
  - Dental caries [Unknown]
  - Dental prosthesis placement [Unknown]
  - Oral infection [Unknown]
  - Dental caries [Unknown]
  - Hypothyroidism [Unknown]
  - Anxiety [Unknown]
  - Hypertension [Unknown]
  - Hyperlipidaemia [Unknown]
  - Carotid artery disease [Unknown]
  - Hysterectomy [Unknown]
  - Uterine dilation and curettage [Unknown]
  - Mitral valve prolapse [Unknown]
  - Hypertension [Unknown]
  - Cardiomegaly [Unknown]
  - Tooth infection [Unknown]
  - Tooth fracture [Unknown]
  - Tooth infection [Unknown]
  - Chronic sinusitis [Unknown]
  - Sinus polyp [Unknown]
  - Nasal septum deviation [Unknown]
  - Intraocular lens implant [Unknown]
  - Cataract [Unknown]
  - Sinonasal papilloma [Unknown]
  - Nasal neoplasm [Unknown]
  - Sinus operation [Unknown]
  - Fungal infection [Unknown]
  - Oral surgery [Unknown]
  - Sinus disorder [Unknown]
  - Rash [Unknown]
